FAERS Safety Report 21367923 (Version 1)
Quarter: 2022Q3

REPORT INFORMATION
  Report Type: Spontaneous
  Country: US (occurrence: US)
  Receive Date: 20220923
  Receipt Date: 20220923
  Transmission Date: 20221026
  Serious: Yes (Hospitalization, Other)
  Sender: FDA-Public Use
  Company Number: US-drreddys-SPO/USA/22/0154809

PATIENT
  Age: 18 Year
  Sex: Male

DRUGS (10)
  1. LORAZEPAM [Suspect]
     Active Substance: LORAZEPAM
     Indication: Substance-induced psychotic disorder
     Dosage: MULTIPLE ROUNDS, TOTAL OF 12 INTRAMUSCULAR AS NEEDED DOSES (PRNS) OVER THE 4 DAYS OF HIS INITIAL ADM
     Route: 030
  2. LORAZEPAM [Suspect]
     Active Substance: LORAZEPAM
     Indication: Substance-induced mood disorder
  3. HALOPERIDOL [Suspect]
     Active Substance: HALOPERIDOL
     Indication: Substance-induced psychotic disorder
     Dosage: MULTIPLE ROUNDS, TOTAL OF 12 INTRAMUSCULAR AS NEEDED DOSES (PRNS) OVER THE 4 DAYS OF HIS INITIAL ADM
     Route: 030
  4. HALOPERIDOL [Suspect]
     Active Substance: HALOPERIDOL
     Indication: Substance-induced mood disorder
  5. OLANZAPINE [Concomitant]
     Active Substance: OLANZAPINE
     Indication: Substance-induced mood disorder
     Route: 048
  6. OLANZAPINE [Concomitant]
     Active Substance: OLANZAPINE
     Indication: Substance-induced psychotic disorder
  7. DIPHENHYDRAMINE [Concomitant]
     Active Substance: DIPHENHYDRAMINE
     Indication: Product used for unknown indication
  8. CHLORPROMAZINE [Concomitant]
     Active Substance: CHLORPROMAZINE
     Indication: Product used for unknown indication
  9. VALPROIC ACID [Concomitant]
     Active Substance: VALPROIC ACID
     Indication: Substance-induced psychotic disorder
     Route: 048
  10. VALPROIC ACID [Concomitant]
     Active Substance: VALPROIC ACID
     Indication: Substance-induced mood disorder

REACTIONS (1)
  - Rhabdomyolysis [Recovering/Resolving]
